FAERS Safety Report 13026129 (Version 1)
Quarter: 2016Q4

REPORT INFORMATION
  Report Type: Spontaneous
  Country: US (occurrence: US)
  Receive Date: 20161214
  Receipt Date: 20161214
  Transmission Date: 20170207
  Serious: Yes (Hospitalization)
  Sender: FDA-Public Use
  Company Number: None

PATIENT
  Age: 57 Year
  Sex: Male
  Weight: 103.7 kg

DRUGS (9)
  1. MULTIVITAMIN [Concomitant]
     Active Substance: VITAMINS
  2. AFFRIN NASAL SPRAY [Concomitant]
  3. ALPHA LIPOIC ACID [Concomitant]
     Active Substance: .ALPHA.-LIPOIC ACID
  4. VITAMIN D3 [Concomitant]
     Active Substance: CHOLECALCIFEROL
  5. FERROUS SULFATE. [Concomitant]
     Active Substance: FERROUS SULFATE
  6. EPCLUSA [Suspect]
     Active Substance: SOFOSBUVIR\VELPATASVIR
     Indication: HEPATITIS C
     Dosage: 400 MG / 100 MG ONCE DAILY BY MOUTH
     Route: 048
     Dates: start: 20160810
  7. LASIX [Concomitant]
     Active Substance: FUROSEMIDE
  8. ALDACTONE [Concomitant]
     Active Substance: SPIRONOLACTONE
  9. RIBAVIRIN 200 MG VARIOUS [Suspect]
     Active Substance: RIBAVIRIN
     Indication: HEPATITIS C
     Dosage: 1000 MG (DIVIDED DOSE) DAILY BY MOUTH
     Route: 048
     Dates: start: 20160810

REACTIONS (5)
  - Vomiting [None]
  - Abdominal pain upper [None]
  - Abdominal pain [None]
  - Cholelithiasis [None]
  - Nausea [None]

NARRATIVE: CASE EVENT DATE: 20161003
